FAERS Safety Report 13268971 (Version 1)
Quarter: 2017Q1

REPORT INFORMATION
  Report Type: Spontaneous
  Country: None (occurrence: CO)
  Receive Date: 20170224
  Receipt Date: 20170224
  Transmission Date: 20170428
  Serious: Yes (Other)
  Sender: FDA-Public Use
  Company Number: CO-POPULATION COUNCIL, INC.-1063562

PATIENT
  Sex: Female

DRUGS (1)
  1. JADELLE [Suspect]
     Active Substance: LEVONORGESTREL
     Indication: CONTRACEPTION
     Dates: start: 20170216

REACTIONS (4)
  - Dizziness [Unknown]
  - Nausea [Unknown]
  - Breast pain [None]
  - Migration of implanted drug [None]

NARRATIVE: CASE EVENT DATE: 20170220
